FAERS Safety Report 6494866-1 (Version None)
Quarter: 2009Q4

REPORT INFORMATION
  Report Type: 
  Country: None (occurrence: None)
  Receive Date: 20091214
  Receipt Date: 20091208
  Transmission Date: 20100525
  Serious: Yes (Life-Threatening, Hospitalization)
  Sender: FDA-Public Use
  Company Number: PHHO2009SG12473

PATIENT
  Sex: Male
  Weight: 82 kg

DRUGS (4)
  1. BLINDED ACZ885 ACZ+ [Suspect]
     Indication: GOUT
     Dosage: DOUBLE BLIND
     Dates: start: 20090720, end: 20091007
  2. BLINDED COLCHICINE COMP-COL+ [Suspect]
     Indication: GOUT
     Dosage: DOUBLE BLIND
     Dates: start: 20090720, end: 20091007
  3. BLINDED NO TREATMENT RECEIVED NOMED [Suspect]
     Indication: GOUT
     Dosage: DOUBLE BLIND
     Dates: start: 20090720, end: 20091007
  4. ALLOPURINOL [Concomitant]
     Route: 048

REACTIONS (12)
  - ACUTE MYOCARDIAL INFARCTION [None]
  - DEBRIDEMENT [None]
  - GANGRENE [None]
  - INCISIONAL DRAINAGE [None]
  - LEG AMPUTATION [None]
  - OEDEMA [None]
  - POSTOPERATIVE WOUND INFECTION [None]
  - RENAL FAILURE ACUTE [None]
  - RENAL IMPAIRMENT [None]
  - SEPSIS [None]
  - SEPTIC SHOCK [None]
  - ULCER [None]
